FAERS Safety Report 9874399 (Version 1)
Quarter: 2014Q1

REPORT INFORMATION
  Report Type: Report from Study
  Country: JP (occurrence: JP)
  Receive Date: 20140206
  Receipt Date: 20140206
  Transmission Date: 20141002
  Serious: Yes (Death)
  Sender: FDA-Public Use
  Company Number: JP-ROCHE-1344110

PATIENT
  Sex: Female
  Weight: 47 kg

DRUGS (2)
  1. METHOXY POLYETHYLENE GLYCOL-EPOETIN BETA [Suspect]
     Indication: NEPHROGENIC ANAEMIA
     Route: 042
     Dates: start: 20120313, end: 20120807
  2. FOSRENOL [Concomitant]
     Indication: PROPHYLAXIS
     Route: 048
     Dates: start: 20110707, end: 20120807

REACTIONS (1)
  - Death [Fatal]
